FAERS Safety Report 4772471-2 (Version None)
Quarter: 2005Q3

REPORT INFORMATION
  Report Type: 
  Country: None (occurrence: None)
  Receive Date: 20050916
  Receipt Date: 20050916
  Transmission Date: 20060218
  Serious: Yes (Life-Threatening, Hospitalization, Disabling)
  Sender: FDA-Public Use
  Company Number: None

PATIENT
  Sex: Female
  Weight: 52.6173 kg

DRUGS (21)
  1. BACLOFEN [Suspect]
     Indication: MUSCLE SPASTICITY
     Dosage: 5 MG 4 X DAILY PO [5 X DOSES STARTING AT 1000 ON 5/25/2005]
     Route: 048
     Dates: start: 20050525
  2. CALCITRIOL [Concomitant]
  3. FLONASE [Concomitant]
  4. PHENYTOIN [Concomitant]
  5. MULTIVITAMIN/FE [Concomitant]
  6. SODIUM BICARBONATE [Concomitant]
  7. METOPROLOL [Concomitant]
  8. PRILOSEC [Concomitant]
  9. TRAMADOL [Concomitant]
  10. LOPERAMIDE [Concomitant]
  11. TUMS [Concomitant]
  12. BISACODYL [Concomitant]
  13. ZYPREXA [Concomitant]
  14. DIOVAN [Concomitant]
  15. PHENOBARBITAL TAB [Concomitant]
  16. FLUDROCORTISONE [Concomitant]
  17. LORATADINE [Concomitant]
  18. RENAGEL [Concomitant]
  19. NORVASC [Concomitant]
  20. PREMPRO [Concomitant]
  21. ... [Concomitant]

REACTIONS (1)
  - LOSS OF CONSCIOUSNESS [None]
